FAERS Safety Report 9197236 (Version 2)
Quarter: 2015Q2

REPORT INFORMATION
  Report Type: Spontaneous
  Country: US (occurrence: US)
  Receive Date: 20130328
  Receipt Date: 20150410
  Transmission Date: 20150821
  Serious: Yes (Hospitalization)
  Sender: FDA-Public Use
  Company Number: US-BAYER-2013-035391

PATIENT
  Age: 45 Year
  Sex: Female
  Weight: 74.83 kg

DRUGS (5)
  1. RELPAX [Concomitant]
     Active Substance: ELETRIPTAN HYDROBROMIDE
  2. CYMBALTA [Concomitant]
     Active Substance: DULOXETINE HYDROCHLORIDE
     Dosage: 60 MG, DAILY
  3. YAZ [Suspect]
     Active Substance: DROSPIRENONE\ETHINYL ESTRADIOL
     Dosage: UNK
     Dates: start: 20071126, end: 20100426
  4. CIPROFLOXACIN. [Concomitant]
     Active Substance: CIPROFLOXACIN
     Dosage: UNK
     Dates: start: 20100310, end: 20100323
  5. AFRIN [OXYMETAZOLINE HYDROCHLORIDE] [Concomitant]

REACTIONS (8)
  - Pain [None]
  - Headache [None]
  - Balance disorder [Not Recovered/Not Resolved]
  - Thalamic infarction [Recovered/Resolved]
  - Cerebrovascular accident [None]
  - Vision blurred [None]
  - Memory impairment [None]
  - Migraine [None]

NARRATIVE: CASE EVENT DATE: 20100426
